FAERS Safety Report 4515364-8 (Version None)
Quarter: 2004Q4

REPORT INFORMATION
  Report Type: 
  Country: None (occurrence: None)
  Receive Date: 20041201
  Receipt Date: 20041122
  Transmission Date: 20050328
  Serious: Yes (Hospitalization)
  Sender: FDA-Public Use
  Company Number: US-ROCHE-386903

PATIENT
  Age: 66 Year
  Sex: Female
  Weight: 130.2 kg

DRUGS (11)
  1. NAPROXEN [Suspect]
     Route: 048
     Dates: start: 20031028, end: 20031121
  2. LANSOPRAZOLE [Suspect]
     Route: 048
     Dates: start: 20031028, end: 20031121
  3. ASPIRIN [Concomitant]
     Indication: PROPHYLAXIS
     Route: 048
     Dates: start: 20031028, end: 20031121
  4. GELUSIL [Concomitant]
     Indication: DYSPEPSIA
     Route: 048
     Dates: start: 20031028, end: 20031121
  5. ENALAPRIL [Concomitant]
     Indication: HYPERTENSION
     Route: 048
     Dates: start: 20030515
  6. ATENOLOL [Concomitant]
     Indication: HYPERTENSION
     Route: 048
     Dates: start: 20030115
  7. ZOLOFT [Concomitant]
     Indication: DEPRESSION
     Route: 048
     Dates: start: 20030615
  8. CLONIDINE [Concomitant]
     Indication: HYPERTENSION
     Route: 048
     Dates: start: 20030315
  9. ALBUTEROL [Concomitant]
     Route: 048
     Dates: start: 20030515
  10. LEVOTHYROXINE SODIUM [Concomitant]
     Indication: HYPOTHYROIDISM
     Route: 048
     Dates: start: 19990615
  11. HYDROCHLOROTHIAZIDE [Concomitant]
     Route: 048
     Dates: start: 20031104

REACTIONS (7)
  - BUNDLE BRANCH BLOCK [None]
  - CARDIAC FAILURE CONGESTIVE [None]
  - CHEST PAIN [None]
  - HEADACHE [None]
  - OEDEMA PERIPHERAL [None]
  - PULMONARY CONGESTION [None]
  - QRS AXIS ABNORMAL [None]
